FAERS Safety Report 23506983 (Version 7)
Quarter: 2024Q3

REPORT INFORMATION
  Report Type: Report from Study
  Country: JP (occurrence: JP)
  Receive Date: 20240209
  Receipt Date: 20240822
  Transmission Date: 20241016
  Serious: Yes (Death, Other)
  Sender: GENMAB
  Company Number: JP-GENMAB-2024-00278

PATIENT
  Age: 76 Year
  Sex: Male
  Weight: 77.9 kg

DRUGS (195)
  1. EPKINLY [Suspect]
     Active Substance: EPCORITAMAB-BYSP
     Indication: Diffuse large B-cell lymphoma
     Dosage: 0.16 MILLIGRAM, SINGLE
     Route: 058
     Dates: start: 20240123, end: 20240123
  2. EPKINLY [Suspect]
     Active Substance: EPCORITAMAB-BYSP
     Indication: Follicular lymphoma
     Dosage: 0.8 MILLIGRAM, SINGLE
     Route: 058
     Dates: start: 20240130, end: 20240130
  3. UNSPECIFIED INGREDIENT [Concomitant]
     Active Substance: UNSPECIFIED INGREDIENT
     Indication: Prophylaxis
     Dosage: UNK, DAY 1 OF EPKINLY
     Dates: start: 20240123, end: 20240123
  4. UNSPECIFIED INGREDIENT [Concomitant]
     Active Substance: UNSPECIFIED INGREDIENT
     Indication: Prophylaxis
     Dosage: UNK, DAY 1 OF EPKINLY
     Dates: start: 20240123, end: 20240123
  5. PREDNISOLONE ACETATE [Concomitant]
     Active Substance: PREDNISOLONE ACETATE
     Dosage: 100 MILLIGRAM/DAY, DRIP INFUSION: 50 MG, 2A
     Dates: start: 20240117, end: 20240126
  6. PREDNISOLONE ACETATE [Concomitant]
     Active Substance: PREDNISOLONE ACETATE
     Dosage: DRIP INFUSION: 50 MG, 2A
     Dates: start: 20240130, end: 20240201
  7. ACITRETIN [Concomitant]
     Active Substance: ACITRETIN
     Indication: Psoriasis
     Dosage: 10 MILLIGRAM, QD, AFTER BREAKFAST
     Route: 048
     Dates: start: 20240118, end: 20240122
  8. SULFAMETHOXAZOLE\TRIMETHOPRIM [Concomitant]
     Active Substance: SULFAMETHOXAZOLE\TRIMETHOPRIM
     Indication: Lymphocyte count decreased
     Dosage: 1 DOSAGE FORM, BID,,AFTER BREAKFAST AND DINNER
     Dates: start: 20240118, end: 20240118
  9. SULFAMETHOXAZOLE\TRIMETHOPRIM [Concomitant]
     Active Substance: SULFAMETHOXAZOLE\TRIMETHOPRIM
     Dosage: 1 DOSAGE FORM, BID  ,AFTER BREAKFAST AND DINNER
     Dates: start: 20240122, end: 20240122
  10. SULFAMETHOXAZOLE\TRIMETHOPRIM [Concomitant]
     Active Substance: SULFAMETHOXAZOLE\TRIMETHOPRIM
     Dosage: 1 DOSAGE FORM, BID  ,AFTER BREAKFAST AND DINNER
     Dates: start: 20240125, end: 20240125
  11. SULFAMETHOXAZOLE\TRIMETHOPRIM [Concomitant]
     Active Substance: SULFAMETHOXAZOLE\TRIMETHOPRIM
     Dosage: 1 DOSAGE FORM, BID  ,AFTER BREAKFAST AND DINNER
     Dates: start: 20240129, end: 20240129
  12. SULFAMETHOXAZOLE\TRIMETHOPRIM [Concomitant]
     Active Substance: SULFAMETHOXAZOLE\TRIMETHOPRIM
     Dosage: 1 DOSAGE FORM, BID, AFTER BREAKFAST AND DINNER
     Dates: start: 20240201, end: 20240201
  13. LASIX [Concomitant]
     Active Substance: FUROSEMIDE
     Dosage: DRIP INFUSION: 20MG 2A , AS DIRECTED BY THE DOCTOR
     Dates: start: 20240118, end: 20240118
  14. LASIX [Concomitant]
     Active Substance: FUROSEMIDE
     Dosage: ONE-SHOT: 20 MG 5A , AS NEEDED
     Dates: start: 20240121, end: 20240121
  15. LASIX [Concomitant]
     Active Substance: FUROSEMIDE
     Dosage: ONE-SHOT: 20 MG 1A , AS NEEDED
     Dates: start: 20240122, end: 20240123
  16. LASIX [Concomitant]
     Active Substance: FUROSEMIDE
     Dosage: DRIP INFUSION: 20MG 1A , AS DIRECTED BY THE DOCTOR
     Dates: start: 20240128, end: 20240128
  17. LASIX [Concomitant]
     Active Substance: FUROSEMIDE
     Dosage: DRIP INFUSION: 20MG 0.5A , AS DIRECTED BY THE DOCTOR
     Dates: start: 20240129, end: 20240202
  18. ACYCLOVIR [Concomitant]
     Active Substance: ACYCLOVIR
     Dosage: 200 MILLIGRAM, QD, AFTER DINNER
     Dates: start: 20240117, end: 20240202
  19. DEXTROSE [Concomitant]
     Active Substance: DEXTROSE\DEXTROSE MONOHYDRATE
     Dosage: AT HYPOGLYCEMIA, 2 PACKS AT A TIME
     Dates: start: 20240117, end: 20240117
  20. SENNOSIDE A [Concomitant]
     Active Substance: SENNOSIDE A
     Dosage: 24 MILLIGRAM ,  AT CONSTIPATION
     Dates: start: 20240117, end: 20240117
  21. SENNOSIDE A [Concomitant]
     Active Substance: SENNOSIDE A
     Dosage: 24 MILLIGRAM, QD ,  AFTER DINNER
     Dates: start: 20240122, end: 20240130
  22. PEROSPIRONE HYDROCHLORIDE [Concomitant]
     Active Substance: PEROSPIRONE HYDROCHLORIDE
     Dosage: 4 MILLIGRAM?AT INSOMNIA, AT UNREST
     Dates: start: 20240117, end: 20240117
  23. PEROSPIRONE HYDROCHLORIDE [Concomitant]
     Active Substance: PEROSPIRONE HYDROCHLORIDE
     Dosage: 4 MILLIGRAM?AT INSOMNIA, AT UNREST
     Dates: start: 20240125, end: 20240125
  24. PRIMPERAN [Concomitant]
     Active Substance: METOCLOPRAMIDE HYDROCHLORIDE
     Dosage: 5 MILLIGRAM , AT NAUSEA
     Dates: start: 20240117, end: 20240117
  25. MAGNESIUM OXIDE [Concomitant]
     Active Substance: MAGNESIUM OXIDE
     Dosage: 330 MILLIGRAM, AT CONSTIPATION
     Dates: start: 20240117, end: 20240117
  26. LINAGLIPTIN [Concomitant]
     Active Substance: LINAGLIPTIN
     Dosage: 5 MILLIGRAM, QD , AFTER BREAKFAST
     Dates: start: 20240118, end: 20240124
  27. FEBUXOSTAT [Concomitant]
     Active Substance: FEBUXOSTAT
     Dosage: 20 MILLIGRAM, QD, AFTER DINNER
     Dates: start: 20240117, end: 20240202
  28. LANSOPRAZOLE [Concomitant]
     Active Substance: LANSOPRAZOLE
     Dosage: 15 MILLIGRAM, QD, AFTER BREAKFAST
     Dates: start: 20240118, end: 20240202
  29. CLOPIDOGREL [Concomitant]
     Active Substance: CLOPIDOGREL BISULFATE
     Dosage: 75 MILLIGRAM, QD, AFTER BREAKFAST
     Dates: start: 20240118, end: 20240124
  30. ISOSORBIDE MONONITRATE [Concomitant]
     Active Substance: ISOSORBIDE MONONITRATE
     Dosage: 20 MILLIGRAM, QD
     Dates: start: 20240117, end: 20240117
  31. ISOSORBIDE MONONITRATE [Concomitant]
     Active Substance: ISOSORBIDE MONONITRATE
     Dosage: 20 MILLIGRAM, BID, AFTER BREAKFAST AND DINNER
     Dates: start: 20240118, end: 20240123
  32. ISOSORBIDE MONONITRATE [Concomitant]
     Active Substance: ISOSORBIDE MONONITRATE
     Dosage: 20 MILLIGRAM, QD
     Dates: start: 20240124, end: 20240124
  33. CARVEDILOL [Concomitant]
     Active Substance: CARVEDILOL
     Dosage: 2.5 MILLIGRAM, QD
     Dates: start: 20240117, end: 20240117
  34. CARVEDILOL [Concomitant]
     Active Substance: CARVEDILOL
     Dosage: 2.5 MILLIGRAM, BID, AFTER BREAKFAST AND DINNER
     Dates: start: 20240118, end: 20240123
  35. CARVEDILOL [Concomitant]
     Active Substance: CARVEDILOL
     Dosage: 2.5 MILLIGRAM, QD
     Dates: start: 20240124, end: 20240124
  36. ROSUVASTATIN CALCIUM [Concomitant]
     Active Substance: ROSUVASTATIN CALCIUM
     Dosage: 2.5 MILLIGRAM, QD, AFTER DINNER
     Dates: start: 20240117, end: 20240202
  37. BROMFENAC SODIUM [Concomitant]
     Active Substance: BROMFENAC SODIUM
     Dosage: 2 DROP,IN THE RIGHT EYE, TWICE
     Dates: start: 20240117, end: 20240117
  38. BROMFENAC SODIUM [Concomitant]
     Active Substance: BROMFENAC SODIUM
     Dosage: 2 DROP, IN THE RIGHT EYE, TWICE
     Dates: start: 20240119, end: 20240121
  39. BROMFENAC SODIUM [Concomitant]
     Active Substance: BROMFENAC SODIUM
     Dosage: 4 DROP, IN THE RIGHT EYE, TWICE
     Dates: start: 20240122, end: 20240124
  40. BROMFENAC SODIUM [Concomitant]
     Active Substance: BROMFENAC SODIUM
     Dosage: 2 DROP, IN THE RIGHT EYE, TWICE
     Dates: start: 20240125, end: 20240126
  41. BROMFENAC SODIUM [Concomitant]
     Active Substance: BROMFENAC SODIUM
     Dosage: 4 DROP, IN THE RIGHT EYE, TWICE
     Dates: start: 20240127, end: 20240130
  42. BROMFENAC SODIUM [Concomitant]
     Active Substance: BROMFENAC SODIUM
     Dosage: 2 DROP, IN THE RIGHT EYE, TWICE
     Dates: start: 20240201, end: 20240202
  43. HYALURONATE SODIUM [Concomitant]
     Active Substance: HYALURONATE SODIUM
     Dosage: 2 DROP,IN THE BOTH EYES
     Dates: start: 20240117, end: 20240117
  44. HYALURONATE SODIUM [Concomitant]
     Active Substance: HYALURONATE SODIUM
     Dosage: 2 DROP,IN THE BOTH EYES
     Dates: start: 20240119, end: 20240119
  45. HYALURONATE SODIUM [Concomitant]
     Active Substance: HYALURONATE SODIUM
     Dosage: 4 DROP,IN THE BOTH EYES
     Dates: start: 20240120, end: 20240121
  46. HYALURONATE SODIUM [Concomitant]
     Active Substance: HYALURONATE SODIUM
     Dosage: 6 DROP,IN THE BOTH EYES
     Dates: start: 20240122, end: 20240122
  47. HYALURONATE SODIUM [Concomitant]
     Active Substance: HYALURONATE SODIUM
     Dosage: 8 DROP,IN THE BOTH EYES
     Dates: start: 20240123, end: 20240123
  48. HYALURONATE SODIUM [Concomitant]
     Active Substance: HYALURONATE SODIUM
     Dosage: 6 DROP,IN THE BOTH EYES
     Dates: start: 20240124, end: 20240124
  49. HYALURONATE SODIUM [Concomitant]
     Active Substance: HYALURONATE SODIUM
     Dosage: 4 DROP,IN THE BOTH EYES
     Dates: start: 20240125, end: 20240127
  50. HYALURONATE SODIUM [Concomitant]
     Active Substance: HYALURONATE SODIUM
     Dosage: 6 DROP,,IN THE BOTH EYES
     Dates: start: 20240128, end: 20240130
  51. HYALURONATE SODIUM [Concomitant]
     Active Substance: HYALURONATE SODIUM
     Dosage: 2 DROP,IN THE BOTH EYES
     Dates: start: 20240131, end: 20240131
  52. HYALURONATE SODIUM [Concomitant]
     Active Substance: HYALURONATE SODIUM
     Dosage: 6 DROP,IN THE BOTH EYES
     Dates: start: 20240201, end: 20240201
  53. HYALURONATE SODIUM [Concomitant]
     Active Substance: HYALURONATE SODIUM
     Dosage: 4 DROP,IN THE BOTH EYES
     Dates: start: 20240202, end: 20240202
  54. FUROSEMIDE [Concomitant]
     Active Substance: FUROSEMIDE
     Dosage: 20 MILLIGRAM, QD, AFTER BREAKFAST
     Dates: start: 20240118, end: 20240124
  55. LEVOTHYROXINE SODIUM [Concomitant]
     Active Substance: LEVOTHYROXINE SODIUM
     Dosage: 50 MICROGRAM, QD, IMMEDIATELY AFTER DINNER
     Dates: start: 20240117, end: 20240202
  56. AZUNOL #1 [Concomitant]
     Dosage: 40 GRAM, QD
     Dates: start: 20240119, end: 20240119
  57. AZUNOL #1 [Concomitant]
     Dosage: 100 GRAM, QD
     Dates: start: 20240131, end: 20240201
  58. POLYETHYLENE GLYCOLS [Concomitant]
     Active Substance: POLYETHYLENE GLYCOLS
     Dosage: 500 GRAM, QD
     Dates: start: 20240119, end: 20240119
  59. GLYCOSAMINOGLYCANS [Concomitant]
     Active Substance: GLYCOSAMINOGLYCANS
     Dosage: 125 GRAM, QD
     Dates: start: 20240119, end: 20240119
  60. AZOSEMIDE [Concomitant]
     Active Substance: AZOSEMIDE
     Dosage: 30 MILLIGRAM, QD, AFTER BREAKFAST
     Dates: start: 20240121, end: 20240122
  61. AZOSEMIDE [Concomitant]
     Active Substance: AZOSEMIDE
     Dosage: 60 MILLIGRAM, BID, AFTER BREAKFAST AND LUNCH
     Dates: start: 20240123, end: 20240123
  62. AZOSEMIDE [Concomitant]
     Active Substance: AZOSEMIDE
     Dosage: 30 MILLIGRAM, QD
     Dates: start: 20240124, end: 20240124
  63. INSULIN GLARGINE [Concomitant]
     Active Substance: INSULIN GLARGINE
     Dosage: 0.02. ONE-SHOT, ONCE DAILY
     Dates: start: 20240121, end: 20240121
  64. INSULIN GLARGINE [Concomitant]
     Active Substance: INSULIN GLARGINE
     Dosage: UNK. ONE-SHOT, ONCE DAILY
     Dates: start: 20240122, end: 20240122
  65. INSULIN GLARGINE [Concomitant]
     Active Substance: INSULIN GLARGINE
     Dosage: 0.02. ONE-SHOT, ONCE DAILY
     Dates: start: 20240123, end: 20240123
  66. INSULIN GLARGINE [Concomitant]
     Active Substance: INSULIN GLARGINE
     Dosage: 0.03, ONE-SHOT, ONCE DAILY
     Dates: start: 20240124, end: 20240124
  67. INSULIN GLARGINE [Concomitant]
     Active Substance: INSULIN GLARGINE
     Dosage: 0.03, ONE-SHOT, ONCE DAILY, AT BEDTIME
     Dates: start: 20240131, end: 20240131
  68. INSULIN GLARGINE [Concomitant]
     Active Substance: INSULIN GLARGINE
     Dosage: 0.06, ONE-SHOT, ONCE DAILY
     Dates: start: 20240201, end: 20240201
  69. INSULIN GLARGINE [Concomitant]
     Active Substance: INSULIN GLARGINE
     Dosage: UNK. ONE-SHOT, ONCE DAILY
     Dates: start: 20240202, end: 20240202
  70. AMITIZA [Concomitant]
     Active Substance: LUBIPROSTONE
     Dosage: 12 MICROGRAM, QD, AFTER DINNER
     Dates: start: 20240122, end: 20240122
  71. AMITIZA [Concomitant]
     Active Substance: LUBIPROSTONE
     Dosage: 12 MICROGRAM, BID, AFTER BREAKFAST AND DINNER
     Dates: start: 20240123, end: 20240130
  72. AMITIZA [Concomitant]
     Active Substance: LUBIPROSTONE
     Dosage: 12 MICROGRAM, QD
     Dates: start: 20240131, end: 20240131
  73. AMITIZA [Concomitant]
     Active Substance: LUBIPROSTONE
     Dosage: 12 MICROGRAM, BID, AFTER BREAKFAST AND DINNER
     Dates: start: 20240201, end: 20240201
  74. AMITIZA [Concomitant]
     Active Substance: LUBIPROSTONE
     Dosage: 12 MICROGRAM, QD
     Dates: start: 20240202, end: 20240202
  75. NOVOLIN R [Concomitant]
     Active Substance: INSULIN HUMAN
     Dosage: DRIP INFUSION: 20 UNITS ONCE, SEVERE, CONTINUOUS INFUSION 20 UNITS ONCE
     Dates: start: 20240118, end: 20240118
  76. NOVOLIN R [Concomitant]
     Active Substance: INSULIN HUMAN
     Dosage: SEVERE, CONTINUOUS INFUSION 20 UNITS ONCE, ONE-SHOT THREE TIMES(UNK-UNK-12 UNITS?
     Dates: start: 20240119, end: 20240119
  77. NOVOLIN R [Concomitant]
     Active Substance: INSULIN HUMAN
     Dosage: SEVERE, CONTINUOUS INFUSION 20 UNITS ONCE, ONE-SHOT FOUR TIMES(6 UNITS -14 UNITS -3 UNITS-UNK?
     Dates: start: 20240120, end: 20240120
  78. NOVOLIN R [Concomitant]
     Active Substance: INSULIN HUMAN
     Dosage: ONE-SHOT FOUR TIMES(8 UNITS -8 UNITS -10 UNITS-4 UNITS?
     Dates: start: 20240121, end: 20240121
  79. NOVOLIN R [Concomitant]
     Active Substance: INSULIN HUMAN
     Dosage: ONE-SHOT FOUR TIMES(6 UNITS -2 UNITS -6 UNITS-UNK?, FLEXPEN  TWICE?UNK-0.01?, FLEXTOUCH?ONE BOTTLE,
     Dates: start: 20240122, end: 20240122
  80. NOVOLIN R [Concomitant]
     Active Substance: INSULIN HUMAN
     Dosage: FLEXPEN THREE TIMES?0.01-0.00-0.02?
     Dates: start: 20240123, end: 20240123
  81. NOVOLIN R [Concomitant]
     Active Substance: INSULIN HUMAN
     Dosage: SEVERE, CONTINUOUS INFUSION 20 UNITS TWICE (20 UNITS -30 UNITS) , FLEXPEN THREE TIMES?UNK-UNK-UNK?
     Dates: start: 20240124, end: 20240125
  82. NOVOLIN R [Concomitant]
     Active Substance: INSULIN HUMAN
     Dosage: SEVERE, CONTINUOUS INFUSION TWICE(20 UNITS -30 UNITS) , FLEXPEN ONCE?UNK?
     Dates: start: 20240126, end: 20240126
  83. NOVOLIN R [Concomitant]
     Active Substance: INSULIN HUMAN
     Dosage: SEVERE, CONTINUOUS INFUSION TWICE(20 UNITS -30 UNITS) ,
     Dates: start: 20240127, end: 20240127
  84. NOVOLIN R [Concomitant]
     Active Substance: INSULIN HUMAN
     Dosage: SEVERE, CONTINUOUS INFUSION TWICE(20 UNITS -50 UNITS) ,
     Dates: start: 20240128, end: 20240128
  85. NOVOLIN R [Concomitant]
     Active Substance: INSULIN HUMAN
     Dosage: SEVERE, CONTINUOUS INFUSION TWICE(40 UNITS -50 UNITS) ,
     Dates: start: 20240129, end: 20240202
  86. GLYCERIN ADULT [Concomitant]
     Active Substance: GLYCERIN
     Dosage: 40 MILLILITER, AT CONSTIPATION
     Dates: start: 20240123, end: 20240123
  87. DEXTROSE [Concomitant]
     Active Substance: DEXTROSE\DEXTROSE MONOHYDRATE
     Dosage: DRIP INFUSION: ONE BOTTLE OF 50MILLILITERS, AS DIRECTED BY THE DOCTOR
     Dates: start: 20240119, end: 20240119
  88. DEXTROSE [Concomitant]
     Active Substance: DEXTROSE\DEXTROSE MONOHYDRATE
     Dosage: DRIP INFUSION: ONE BOTTLE OF 50MILLILITERS
     Dates: start: 20240122, end: 20240122
  89. DEXTROSE [Concomitant]
     Active Substance: DEXTROSE\DEXTROSE MONOHYDRATE
     Dosage: DRIP INFUSION: ONE BOTTLE OF 50MILLILITERS, AS DIRECTED BY THE DOCTOR
     Dates: start: 20240123, end: 20240124
  90. DEXTROSE [Concomitant]
     Active Substance: DEXTROSE\DEXTROSE MONOHYDRATE
     Dosage: DRIP INFUSION: FOUR BOTTLES OF 50MILLILITERS, AS DIRECTED BY THE DOCTOR
     Dates: start: 20240128, end: 20240128
  91. DEXTROSE [Concomitant]
     Active Substance: DEXTROSE\DEXTROSE MONOHYDRATE
     Dosage: DRIP INFUSION: TWO BOTTLES OF 50MILLILITERS, AS DIRECTED BY THE DOCTOR
     Dates: start: 20240129, end: 20240130
  92. DEXTROSE [Concomitant]
     Active Substance: DEXTROSE\DEXTROSE MONOHYDRATE
     Dosage: DRIP INFUSION: THREE BOTTLES OF 50MILLILITERS, AS DIRECTED BY THE DOCTOR
     Dates: start: 20240131, end: 20240131
  93. DEXTROSE [Concomitant]
     Active Substance: DEXTROSE\DEXTROSE MONOHYDRATE
     Dosage: DRIP INFUSION: FOUR BOTTLES OF 50MILLILITERS, THREE BOTTLES OF 100MILLILITERS, , AS DIRECTED BY THE
     Dates: start: 20240201, end: 20240201
  94. DEXTROSE [Concomitant]
     Active Substance: DEXTROSE\DEXTROSE MONOHYDRATE
     Dosage: DRIP INFUSION: FOUR BOTTLES OF 50MILLILITERS, TWO BOTTLES OF 100MILLILITERS, , AS DIRECTED BY THE DO
     Dates: start: 20240202, end: 20240202
  95. POLARAMINE [Concomitant]
     Active Substance: DEXCHLORPHENIRAMINE MALEATE
     Dosage: DRIP INFUSION: 5MG 1A
     Dates: start: 20240122, end: 20240123
  96. POLARAMINE [Concomitant]
     Active Substance: DEXCHLORPHENIRAMINE MALEATE
     Dosage: DRIP INFUSION: 5MG 1A
     Dates: start: 20240130, end: 20240130
  97. WATER FOR INJECTION [Concomitant]
     Active Substance: WATER
     Dosage: DRIP INFUSION: 20 MILLILITERS 1A
     Dates: start: 20240122, end: 20240122
  98. POLIVY [Concomitant]
     Active Substance: POLATUZUMAB VEDOTIN-PIIQ
     Dosage: DRIP INFUSION: 30 MG 4.9 BOTTLES
     Dates: start: 20240122, end: 20240122
  99. NOVORAPID [Concomitant]
     Active Substance: INSULIN ASPART
     Dosage: ONE-SHOT , TWICE
     Dates: start: 20240117, end: 20240117
  100. POTASSIUM CHLORIDE [Concomitant]
     Active Substance: POTASSIUM CHLORIDE
     Dosage: 3 GRAM,  AS DIRECTED BY THE DOCTOR
     Dates: start: 20240122, end: 20240124
  101. POTASSIUM CHLORIDE [Concomitant]
     Active Substance: POTASSIUM CHLORIDE
     Dosage: 3 GRAM,  AS DIRECTED BY THE DOCTOR
     Dates: start: 20240128, end: 20240130
  102. POTASSIUM CHLORIDE [Concomitant]
     Active Substance: POTASSIUM CHLORIDE
     Dosage: 6 GRAM,  AS DIRECTED BY THE DOCTOR
     Dates: start: 20240131, end: 20240131
  103. POTASSIUM CHLORIDE [Concomitant]
     Active Substance: POTASSIUM CHLORIDE
     Dosage: 3 GRAM,  AS DIRECTED BY THE DOCTOR
     Dates: start: 20240201, end: 20240201
  104. HEPARIN SODIUM [Concomitant]
     Active Substance: HEPARIN SODIUM
     Dosage: ONE-SHOT , 1000 UNITS, 1 SET
     Dates: start: 20240122, end: 20240122
  105. ACETAMINOPHEN [Concomitant]
     Active Substance: ACETAMINOPHEN
     Dosage: DRIP INFUSION: 1000MG 1 BAG AT PAIN; 1,000 MG, 0.6 BAGS, AT FEVER AT 38 DEGREES CELSIUS OR HIGHER
     Dates: start: 20240117, end: 20240117
  106. ACETAMINOPHEN [Concomitant]
     Active Substance: ACETAMINOPHEN
     Dosage: DRIP INFUSION: 1000MG 0.6 BAGS
     Dates: start: 20240122, end: 20240122
  107. ACETAMINOPHEN [Concomitant]
     Active Substance: ACETAMINOPHEN
     Dosage: DRIP INFUSION: 1000MG 0.9 BAGS
     Dates: start: 20240123, end: 20240123
  108. ACETAMINOPHEN [Concomitant]
     Active Substance: ACETAMINOPHEN
     Dosage: DRIP INFUSION: 1000MG 1 BAG AT PAIN
     Dates: start: 20240126, end: 20240126
  109. ACETAMINOPHEN [Concomitant]
     Active Substance: ACETAMINOPHEN
     Dosage: DRIP INFUSION: 1000MG 1 BAG
     Dates: start: 20240128, end: 20240129
  110. ACETAMINOPHEN [Concomitant]
     Active Substance: ACETAMINOPHEN
     Dosage: DRIP INFUSION: 1000MG 0.9 BAGS  1000MG 1 BAG
     Dates: start: 20240130, end: 20240130
  111. PRIMPERAN [Concomitant]
     Active Substance: METOCLOPRAMIDE HYDROCHLORIDE
     Dosage: DRIP INFUSION:10MG 1A , AT NAUSEA OR  DISCOMFORT
     Dates: start: 20240117, end: 20240117
  112. CEFEPIME HYDROCHLORIDE [Concomitant]
     Active Substance: CEFEPIME HYDROCHLORIDE
     Dosage: DRIP INFUSION: 1 G, 2 BOTTLES, AS NEEDED
     Dates: start: 20240117, end: 20240117
  113. CALCIUM CHLORIDE\POTASSIUM CHLORIDE\SODIUM CHLORIDE\SODIUM LACTATE [Concomitant]
     Active Substance: CALCIUM CHLORIDE\POTASSIUM CHLORIDE\SODIUM CHLORIDE\SODIUM LACTATE
     Dosage: DRIP INFUSION: 500 ML, 1 BAG
     Dates: start: 20240117, end: 20240117
  114. CALCIUM CHLORIDE\POTASSIUM CHLORIDE\SODIUM CHLORIDE\SODIUM LACTATE [Concomitant]
     Active Substance: CALCIUM CHLORIDE\POTASSIUM CHLORIDE\SODIUM CHLORIDE\SODIUM LACTATE
     Dosage: DRIP INFUSION: 500 ML, 1 BAG 0.5BAGS ,AS DIRECTED BY THE DOCTOR
     Dates: start: 20240118, end: 20240118
  115. CALCIUM CHLORIDE\POTASSIUM CHLORIDE\SODIUM CHLORIDE\SODIUM LACTATE [Concomitant]
     Active Substance: CALCIUM CHLORIDE\POTASSIUM CHLORIDE\SODIUM CHLORIDE\SODIUM LACTATE
     Dosage: DRIP INFUSION: 500 ML, 0.5BAGS
     Dates: start: 20240119, end: 20240119
  116. CALCIUM CHLORIDE\POTASSIUM CHLORIDE\SODIUM CHLORIDE\SODIUM LACTATE [Concomitant]
     Active Substance: CALCIUM CHLORIDE\POTASSIUM CHLORIDE\SODIUM CHLORIDE\SODIUM LACTATE
     Dosage: DRIP INFUSION: 500 ML, 0.6 BAGS, 2BAGS
     Dates: start: 20240126, end: 20240126
  117. CALCIUM CHLORIDE\POTASSIUM CHLORIDE\SODIUM CHLORIDE\SODIUM LACTATE [Concomitant]
     Active Substance: CALCIUM CHLORIDE\POTASSIUM CHLORIDE\SODIUM CHLORIDE\SODIUM LACTATE
     Dosage: DRIP INFUSION: 500 ML, 0.5BAGS, AS DIRECTED BY THE DOCTOR
     Dates: start: 20240201, end: 20240201
  118. CALCIUM CHLORIDE\POTASSIUM CHLORIDE\SODIUM CHLORIDE\SODIUM LACTATE [Concomitant]
     Active Substance: CALCIUM CHLORIDE\POTASSIUM CHLORIDE\SODIUM CHLORIDE\SODIUM LACTATE
     Dosage: DRIP INFUSION: 500 ML, 5BAGS, AS DIRECTED BY THE DOCTOR
     Dates: start: 20240202, end: 20240202
  119. RASBURICASE [Concomitant]
     Active Substance: RASBURICASE
     Dosage: DRIP INFUSION: 7.5 MG, 2 BOTTLES
     Dates: start: 20240117, end: 20240122
  120. VANCOMYCIN [Concomitant]
     Active Substance: VANCOMYCIN
     Dosage: DRIP INFUSION: 1,000 MG, 1.5 BOTTLES, 0.8 BOTTLES
     Dates: start: 20240118, end: 20240118
  121. VANCOMYCIN [Concomitant]
     Active Substance: VANCOMYCIN
     Dosage: DRIP INFUSION: 1,000 MG, 0.7 BOTTLES
     Dates: start: 20240119, end: 20240119
  122. VANCOMYCIN [Concomitant]
     Active Substance: VANCOMYCIN
     Dosage: DRIP INFUSION: 1,000 MG, 0.7 BOTTLES, 0.5 BOTTLES
     Dates: start: 20240120, end: 20240120
  123. VANCOMYCIN [Concomitant]
     Active Substance: VANCOMYCIN
     Dosage: DRIP INFUSION: 1,000 MG, 0.8 BOTTLES
     Dates: start: 20240122, end: 20240122
  124. VANCOMYCIN [Concomitant]
     Active Substance: VANCOMYCIN
     Dosage: DRIP INFUSION: 1,000 MG, 2 BOTTLES
     Dates: start: 20240131, end: 20240131
  125. VANCOMYCIN [Concomitant]
     Active Substance: VANCOMYCIN
     Dosage: DRIP INFUSION: 1,000 MG, 1.8 BOTTLES
     Dates: start: 20240201, end: 20240202
  126. CALCIUM GLUCONATE\DEXTROSE\MAGNESIUM CHLORIDE\POTASSIUM CHLORIDE\SODIU [Concomitant]
     Active Substance: CALCIUM GLUCONATE\DEXTROSE\MAGNESIUM CHLORIDE\POTASSIUM CHLORIDE\SODIUM ACETATE\SODIUM CHLORIDE\TRIS
     Dosage: SEVERE, CONTINUOUS INFUSION: 500 ML, 2 BAGS
     Dates: start: 20240118, end: 20240118
  127. CALCIUM GLUCONATE\DEXTROSE\MAGNESIUM CHLORIDE\POTASSIUM CHLORIDE\SODIU [Concomitant]
     Active Substance: CALCIUM GLUCONATE\DEXTROSE\MAGNESIUM CHLORIDE\POTASSIUM CHLORIDE\SODIUM ACETATE\SODIUM CHLORIDE\TRIS
     Dosage: SEVERE, CONTINUOUS INFUSION: 500 ML, 1 BAG
     Dates: start: 20240119, end: 20240120
  128. CALCIUM GLUCONATE\DEXTROSE\MAGNESIUM CHLORIDE\POTASSIUM CHLORIDE\SODIU [Concomitant]
     Active Substance: CALCIUM GLUCONATE\DEXTROSE\MAGNESIUM CHLORIDE\POTASSIUM CHLORIDE\SODIUM ACETATE\SODIUM CHLORIDE\TRIS
     Dosage: SEVERE, CONTINUOUS INFUSION: 500 ML, 1 BAG
     Dates: start: 20240122, end: 20240123
  129. CALCIUM GLUCONATE\DEXTROSE\MAGNESIUM CHLORIDE\POTASSIUM CHLORIDE\SODIU [Concomitant]
     Active Substance: CALCIUM GLUCONATE\DEXTROSE\MAGNESIUM CHLORIDE\POTASSIUM CHLORIDE\SODIUM ACETATE\SODIUM CHLORIDE\TRIS
     Dosage: SEVERE, CONTINUOUS INFUSION: 500 ML, 1 BAG
     Dates: start: 20240124, end: 20240126
  130. CALCIUM GLUCONATE [Concomitant]
     Active Substance: CALCIUM GLUCONATE
     Dosage: DRIP INFUSION: 425 MG, 3A, AS DIRECTED BY THE DOCTOR
     Dates: start: 20240118, end: 20240118
  131. CALCIUM GLUCONATE [Concomitant]
     Active Substance: CALCIUM GLUCONATE
     Dosage: ONE-SHOT: 425 MG, 2A , AS DIRECTED
     Dates: start: 20240121, end: 20240121
  132. CALCIUM GLUCONATE [Concomitant]
     Active Substance: CALCIUM GLUCONATE
     Dosage: ONE-SHOT: 425 MG, 1A, AS DIRECTED BY THE DOCTOR
     Dates: start: 20240122, end: 20240122
  133. BUPRENORPHINE HYDROCHLORIDE [Concomitant]
     Active Substance: BUPRENORPHINE HYDROCHLORIDE
     Dosage: DRIP INFUSION: 0.2 MG, 1A, AS DIRECTED BY THE DOCTOR
     Dates: start: 20240118, end: 20240118
  134. BUPRENORPHINE HYDROCHLORIDE [Concomitant]
     Active Substance: BUPRENORPHINE HYDROCHLORIDE
     Dosage: DRIP INFUSION: 0.2 MG, 0.5A, AS DIRECTED BY THE DOCTOR
     Dates: start: 20240128, end: 20240130
  135. MEYLON [Concomitant]
     Active Substance: SODIUM BICARBONATE
     Dosage: DRIP INFUSION: 250 ML, 1 BAG, AS APPROPRIATE
     Dates: start: 20240118, end: 20240118
  136. MEYLON [Concomitant]
     Active Substance: SODIUM BICARBONATE
     Dosage: DRIP INFUSION: 250 ML, 1 BAG, ACIDEMIA CORRECTION
     Dates: start: 20240202, end: 20240202
  137. HEPARIN SODIUM [Concomitant]
     Active Substance: HEPARIN SODIUM
     Dosage: SEVERE, CONTINUOUS INFUSION: 5000 UNITS, 2 A
     Dates: start: 20240118, end: 20240126
  138. HEPARIN SODIUM [Concomitant]
     Active Substance: HEPARIN SODIUM
     Dosage: SEVERE, CONTINUOUS INFUSION: 5000 UNITS, 2 A
     Dates: start: 20240129, end: 20240202
  139. MEROPENEM [Concomitant]
     Active Substance: MEROPENEM
     Dosage: DRIP INFUSION: 500 MG, 2 BOTTLES
     Dates: start: 20240118, end: 20240118
  140. MEROPENEM [Concomitant]
     Active Substance: MEROPENEM
     Dosage: DRIP INFUSION: 500 MG, 4 BOTTLES
     Dates: start: 20240119, end: 20240122
  141. MEROPENEM [Concomitant]
     Active Substance: MEROPENEM
     Dosage: DRIP INFUSION: 500 MG, 2 BOTTLES
     Dates: start: 20240123, end: 20240123
  142. MEROPENEM [Concomitant]
     Active Substance: MEROPENEM
     Dosage: DRIP INFUSION: 500 MG, 4 BOTTLES
     Dates: start: 20240131, end: 20240202
  143. CYANOCOBALAMIN\PYRIDOXINE HYDROCHLORIDE\THIAMINE [Concomitant]
     Active Substance: CYANOCOBALAMIN\PYRIDOXINE HYDROCHLORIDE\THIAMINE
     Dosage: DRIP INFUSION: 1 BOTTLE
     Dates: start: 20240118, end: 20240127
  144. MAGNESIUM SULFATE AND GLUCOSE [Concomitant]
     Dosage: DRIP INFUSION: 20 ML, 1A, AS DIRECTED BY THE DOCTOR
     Dates: start: 20240119, end: 20240119
  145. MAGNESIUM SULFATE AND GLUCOSE [Concomitant]
     Dosage: DRIP INFUSION: 20 ML, 1A, AS DIRECTED BY THE DOCTOR
     Dates: start: 20240122, end: 20240122
  146. MAGNESIUM SULFATE AND GLUCOSE [Concomitant]
     Dosage: DRIP INFUSION: 20 ML, 2A, AS DIRECTED BY THE DOCTOR
     Dates: start: 20240123, end: 20240123
  147. MAGNESIUM SULFATE AND GLUCOSE [Concomitant]
     Dosage: DRIP INFUSION: 20 ML, 2A, AS DIRECTED BY THE DOCTOR
     Dates: start: 20240124, end: 20240124
  148. MAGNESIUM SULFATE AND GLUCOSE [Concomitant]
     Dosage: DRIP INFUSION: 20 ML, 1A, AS DIRECTED BY THE DOCTOR
     Dates: start: 20240125, end: 20240127
  149. MAGNESIUM SULFATE AND GLUCOSE [Concomitant]
     Dosage: DRIP INFUSION: 20 ML, 2A, AS DIRECTED BY THE DOCTOR
     Dates: start: 20240128, end: 20240131
  150. MAGNESIUM SULFATE AND GLUCOSE [Concomitant]
     Dosage: DRIP INFUSION: 20 ML, 3A, AS DIRECTED BY THE DOCTOR
     Dates: start: 20240201, end: 20240202
  151. POTASSIUM CHLORIDE [Concomitant]
     Active Substance: POTASSIUM CHLORIDE
     Dosage: DRIP INFUSION: 1 KIT, AS DIRECTED
     Dates: start: 20240122, end: 20240127
  152. POTASSIUM CHLORIDE [Concomitant]
     Active Substance: POTASSIUM CHLORIDE
     Dosage: DRIP INFUSION: 2 KITS, AS DIRECTED
     Dates: start: 20240128, end: 20240131
  153. POTASSIUM CHLORIDE [Concomitant]
     Active Substance: POTASSIUM CHLORIDE
     Dosage: DRIP INFUSION: 3 KITS, AS DIRECTED
     Dates: start: 20240201, end: 20240202
  154. CALCIUM GLUCONATE\DEXTROSE\MAGNESIUM SULFATE\POTASSIUM ACETATE\POTASSI [Concomitant]
     Active Substance: CALCIUM GLUCONATE\DEXTROSE\MAGNESIUM SULFATE\POTASSIUM ACETATE\POTASSIUM PHOSPHATE, DIBASIC\ZINC SUL
     Dosage: SEVERE, CONTINUOUS INFUSION: 500 ML, 1 BAG
     Dates: start: 20240123, end: 20240123
  155. CALCIUM GLUCONATE\DEXTROSE\MAGNESIUM SULFATE\POTASSIUM ACETATE\POTASSI [Concomitant]
     Active Substance: CALCIUM GLUCONATE\DEXTROSE\MAGNESIUM SULFATE\POTASSIUM ACETATE\POTASSIUM PHOSPHATE, DIBASIC\ZINC SUL
     Dosage: SEVERE, CONTINUOUS INFUSION: 500 ML, 2 BAGS
     Dates: start: 20240124, end: 20240124
  156. CALCIUM GLUCONATE\DEXTROSE\MAGNESIUM SULFATE\POTASSIUM ACETATE\POTASSI [Concomitant]
     Active Substance: CALCIUM GLUCONATE\DEXTROSE\MAGNESIUM SULFATE\POTASSIUM ACETATE\POTASSIUM PHOSPHATE, DIBASIC\ZINC SUL
     Dosage: SEVERE, CONTINUOUS INFUSION: 500 ML, 1 BAG
     Dates: start: 20240125, end: 20240202
  157. MULTAMIN [AMINO ACIDS NOS;VITAMINS NOS] [Concomitant]
     Dosage: SEVERE, CONTINUOUS INFUSION:  1 BOTTLE
     Dates: start: 20240123, end: 20240123
  158. MULTAMIN [AMINO ACIDS NOS;VITAMINS NOS] [Concomitant]
     Dosage: SEVERE, CONTINUOUS INFUSION:  2 BOTTLES
     Dates: start: 20240124, end: 20240124
  159. MULTAMIN [AMINO ACIDS NOS;VITAMINS NOS] [Concomitant]
     Dosage: SEVERE, CONTINUOUS INFUSION:  1 BOTTLE
     Dates: start: 20240125, end: 20240202
  160. ELEJECT [Concomitant]
     Dosage: SEVERE, CONTINUOUS INFUSION:  2 ML, 1 SYRINGE
     Dates: start: 20240123, end: 20240123
  161. ELEJECT [Concomitant]
     Dosage: SEVERE, CONTINUOUS INFUSION:  2 ML, 2 SYRINGES
     Dates: start: 20240124, end: 20240124
  162. ELEJECT [Concomitant]
     Dosage: SEVERE, CONTINUOUS INFUSION:  2 ML, 1 SYRINGE
     Dates: start: 20240125, end: 20240202
  163. AMINO ACIDS, SOURCE UNSPECIFIED [Concomitant]
     Active Substance: AMINO ACIDS, SOURCE UNSPECIFIED
     Dosage: DRIP INFUSION: 200 ML, 2 BAGS
     Dates: start: 20240123, end: 20240123
  164. AMINO ACIDS, SOURCE UNSPECIFIED [Concomitant]
     Active Substance: AMINO ACIDS, SOURCE UNSPECIFIED
     Dosage: DRIP INFUSION: 200 ML, 4 BAGS
     Dates: start: 20240124, end: 20240124
  165. AMINO ACIDS, SOURCE UNSPECIFIED [Concomitant]
     Active Substance: AMINO ACIDS, SOURCE UNSPECIFIED
     Dosage: DRIP INFUSION: 200 ML, 3 BAGS
     Dates: start: 20240126, end: 20240126
  166. AMINO ACIDS, SOURCE UNSPECIFIED [Concomitant]
     Active Substance: AMINO ACIDS, SOURCE UNSPECIFIED
     Dosage: DRIP INFUSION: 200 ML, 4 BAGS
     Dates: start: 20240127, end: 20240127
  167. AMINO ACIDS, SOURCE UNSPECIFIED [Concomitant]
     Active Substance: AMINO ACIDS, SOURCE UNSPECIFIED
     Dosage: DRIP INFUSION: 200 ML, 3 BAGS
     Dates: start: 20240128, end: 20240128
  168. AMINO ACIDS, SOURCE UNSPECIFIED [Concomitant]
     Active Substance: AMINO ACIDS, SOURCE UNSPECIFIED
     Dosage: DRIP INFUSION: 200 ML,6 BAGS
     Dates: start: 20240129, end: 20240131
  169. AMINO ACIDS, SOURCE UNSPECIFIED [Concomitant]
     Active Substance: AMINO ACIDS, SOURCE UNSPECIFIED
     Dosage: DRIP INFUSION: 200 ML, 7 BAGS
     Dates: start: 20240201, end: 20240201
  170. AMINO ACIDS, SOURCE UNSPECIFIED [Concomitant]
     Active Substance: AMINO ACIDS, SOURCE UNSPECIFIED
     Dosage: DRIP INFUSION: 200 ML, 5 BAGS
     Dates: start: 20240202, end: 20240202
  171. DAYVIGO [Concomitant]
     Active Substance: LEMBOREXANT
     Dosage: 2.5 MG, AT INSOMNIA, AT UNREST
     Dates: start: 20240117, end: 20240117
  172. DAYVIGO [Concomitant]
     Active Substance: LEMBOREXANT
     Dosage: 2.5 MG, AT INSOMNIA, AT UNREST, 5MG AT BEDTIME
     Dates: start: 20240130, end: 20240130
  173. ISOTONIC SODIUM CHLORIDE SOLUTION [Concomitant]
     Active Substance: SODIUM CHLORIDE
     Dosage: DRIP INFUSION: (250 ML, 1 BAG; 20 ML, 2A; 100 ML, 1 BOTTLE; PL: 50 ML, 2 BOTTLES), SEVERE CONTINUOUS
     Dates: start: 20240118, end: 20240118
  174. ISOTONIC SODIUM CHLORIDE SOLUTION [Concomitant]
     Active Substance: SODIUM CHLORIDE
     Dosage: DRIP INFUSION: (100 ML, 1 BOTTLE; 250 ML, 2 BAGS;  PL: 50 ML, 3 BOTTLES), SEVERE CONTINUOUS INFUSION
     Dates: start: 20240119, end: 20240119
  175. ISOTONIC SODIUM CHLORIDE SOLUTION [Concomitant]
     Active Substance: SODIUM CHLORIDE
     Dosage: DRIP INFUSION: (100 ML, 2 BOTTLES; PL: 50 ML; 3 BOTTLES), SEVERE CONTINUOUS INFUSION: (500 ML, 1 BAG
     Dates: start: 20240120, end: 20240120
  176. ISOTONIC SODIUM CHLORIDE SOLUTION [Concomitant]
     Active Substance: SODIUM CHLORIDE
     Dosage: DRIP INFUSION: ( PL: 50 ML, 3 BOTTLES), SEVERE CONTINUOUS INFUSION: (500 ML, 1 BAG; 100 ML, 2 BOTTLE
     Dates: start: 20240121, end: 20240121
  177. ISOTONIC SODIUM CHLORIDE SOLUTION [Concomitant]
     Active Substance: SODIUM CHLORIDE
     Dosage: DRIP INFUSION: (100 ML, 3 BOTTLES; PL: 50 ML, 4 BOTTLES; 50 ML, 1 KIT), SEVERE CONTINUOUS INFUSION:
     Dates: start: 20240122, end: 20240122
  178. ISOTONIC SODIUM CHLORIDE SOLUTION [Concomitant]
     Active Substance: SODIUM CHLORIDE
     Dosage: DRIP INFUSION: (100 ML, 1 BOTTLE, AT FEVER AT 38 DEGREES CELSIUS OR HIGHER; PL: 50 ML, 1 BOTTLE; 50
     Dates: start: 20240123, end: 20240123
  179. ISOTONIC SODIUM CHLORIDE SOLUTION [Concomitant]
     Active Substance: SODIUM CHLORIDE
     Dosage: DRIP INFUSION: (100 ML, 1 BOTTLE, AT FEVER AT 38 DEGREES CELSIUS OR HIGHER; 100 ML, 1 BOTTLE), SEVER
     Dates: start: 20240124, end: 20240124
  180. ISOTONIC SODIUM CHLORIDE SOLUTION [Concomitant]
     Active Substance: SODIUM CHLORIDE
     Dosage: DRIP INFUSION: (100 ML, 1 BOTTLE, AT FEVER AT 38 DEGREES CELSIUS OR HIGHER; 100 ML, 1 BOTTLE; PL: 50
     Dates: start: 20240125, end: 20240125
  181. ISOTONIC SODIUM CHLORIDE SOLUTION [Concomitant]
     Active Substance: SODIUM CHLORIDE
     Dosage: DRIP INFUSION: (100 ML, 1 BOTTLE, AT FEVER AT 38 DEGREES CELSIUS OR HIGHER; 100 ML, 1 BOTTLE; PL: 50
     Dates: start: 20240126, end: 20240126
  182. ISOTONIC SODIUM CHLORIDE SOLUTION [Concomitant]
     Active Substance: SODIUM CHLORIDE
     Dosage: DRIP INFUSION: (100 ML, 1 BOTTLE, AT FEVER AT 38 DEGREES CELSIUS OR HIGHER; 100 ML, 1 BOTTLE), SEVER
     Dates: start: 20240127, end: 20240127
  183. ISOTONIC SODIUM CHLORIDE SOLUTION [Concomitant]
     Active Substance: SODIUM CHLORIDE
     Dosage: DRIP INFUSION: (100 ML, 1 BOTTLE, AT FEVER AT 38 DEGREES CELSIUS OR HIGHER; 100 ML, 2 BOTTLES; PL: 5
     Dates: start: 20240128, end: 20240128
  184. ISOTONIC SODIUM CHLORIDE SOLUTION [Concomitant]
     Active Substance: SODIUM CHLORIDE
     Dosage: DRIP INFUSION: (100 ML, 1 BOTTLE, AT FEVER AT 38 DEGREES CELSIUS OR HIGHER; 100 ML, 2 BOTTLES; PL: 5
     Dates: start: 20240129, end: 20240129
  185. ISOTONIC SODIUM CHLORIDE SOLUTION [Concomitant]
     Active Substance: SODIUM CHLORIDE
     Dosage: DRIP INFUSION: (100 ML, 1 BOTTLE, AT FEVER AT 38 DEGREES CELSIUS OR HIGHER; 100 ML, 2 BOTTLES; PL: 5
     Dates: start: 20240130, end: 20240130
  186. ISOTONIC SODIUM CHLORIDE SOLUTION [Concomitant]
     Active Substance: SODIUM CHLORIDE
     Dosage: DRIP INFUSION: (100 ML, 1 BOTTLE, AT FEVER AT 38 DEGREES CELSIUS OR HIGHER; 100 ML, 2 BOTTLES; PL: 5
     Dates: start: 20240131, end: 20240131
  187. ISOTONIC SODIUM CHLORIDE SOLUTION [Concomitant]
     Active Substance: SODIUM CHLORIDE
     Dosage: DRIP INFUSION: (100 ML, 2 BOTTLES, AT FEVER AT 38 DEGREES CELSIUS OR HIGHER; 100 ML, 2 BOTTLES; PL:
     Dates: start: 20240201, end: 20240201
  188. ISOTONIC SODIUM CHLORIDE SOLUTION [Concomitant]
     Active Substance: SODIUM CHLORIDE
     Dosage: DRIP INFUSION: (100 ML, 1 BOTTLE, AT FEVER AT 38 DEGREES CELSIUS OR HIGHER; 100 ML, 3 BOTTLES; PL: 5
     Dates: start: 20240202, end: 20240202
  189. ISOTONIC SODIUM CHLORIDE JEIL [Concomitant]
     Dosage: DRIP INFUSION: 100 ML, 1 KIT
     Dates: start: 20240118, end: 20240126
  190. ISOTONIC SODIUM CHLORIDE JEIL [Concomitant]
     Dosage: DRIP INFUSION: 100 ML, 1 KIT
     Dates: start: 20240130, end: 20240131
  191. NOREPINEPHRINE BITARTRATE [Concomitant]
     Active Substance: NOREPINEPHRINE BITARTRATE
     Indication: Hypotension
     Dosage: SEVERE, CONTINUOUS INFUSION: 1MG 5A
     Dates: start: 20240118, end: 20240118
  192. NOREPINEPHRINE BITARTRATE [Concomitant]
     Active Substance: NOREPINEPHRINE BITARTRATE
     Dosage: SEVERE, CONTINUOUS INFUSION: 1MG 5A
     Dates: start: 20240122, end: 20240126
  193. NOREPINEPHRINE BITARTRATE [Concomitant]
     Active Substance: NOREPINEPHRINE BITARTRATE
     Dosage: SEVERE, CONTINUOUS INFUSION: 1MG 5A
     Dates: start: 20240128, end: 20240131
  194. NOREPINEPHRINE BITARTRATE [Concomitant]
     Active Substance: NOREPINEPHRINE BITARTRATE
     Dosage: SEVERE, CONTINUOUS INFUSION: 1MG 10A
     Dates: start: 20240201, end: 20240201
  195. NOREPINEPHRINE BITARTRATE [Concomitant]
     Active Substance: NOREPINEPHRINE BITARTRATE
     Dosage: SEVERE, CONTINUOUS INFUSION: 1MG 5A, ONE-SHOT: 1MG 5A, AS DIRECTED BY THE DOCTOR
     Dates: start: 20240202, end: 20240202

REACTIONS (9)
  - Cytokine release syndrome [Fatal]
  - Abdominal wall haematoma [Unknown]
  - Peritoneal haematoma [Unknown]
  - Peripheral venous disease [Unknown]
  - Gamma-glutamyltransferase increased [Unknown]
  - Activated partial thromboplastin time prolonged [Unknown]
  - Blood pressure decreased [Recovered/Resolved]
  - Blood pressure decreased [Unknown]
  - Pleural effusion [Unknown]

NARRATIVE: CASE EVENT DATE: 20240101
